FAERS Safety Report 6652762-0 (Version None)
Quarter: 2010Q1

REPORT INFORMATION
  Report Type: 
  Country: None (occurrence: None)
  Receive Date: 20100326
  Receipt Date: 20100316
  Transmission Date: 20100710
  Serious: Yes (Congenital Anomaly)
  Sender: FDA-Public Use
  Company Number: GXKR2010GB03138

PATIENT

DRUGS (3)
  1. GABAPENTIN [Suspect]
     Dosage: MATERNAL DOSE: 1200 MG BID
     Route: 064
  2. LAMOTRIGINE [Suspect]
     Dosage: MATERNAL DOSE: 400 MG BID
     Route: 064
  3. KEPPRA [Suspect]
     Dosage: MATERNAL DOSE: 2 G BID
     Route: 064

REACTIONS (2)
  - DRUG EXPOSURE DURING PREGNANCY [None]
  - TALIPES [None]
